FAERS Safety Report 6682290-8 (Version None)
Quarter: 2010Q2

REPORT INFORMATION
  Report Type: 
  Country: None (occurrence: None)
  Receive Date: 20100414
  Receipt Date: 20100414
  Transmission Date: 20101027
  Serious: Yes (Death)
  Sender: FDA-Public Use
  Company Number: None

PATIENT
  Age: 26 Year
  Sex: Male
  Weight: 104.3273 kg

DRUGS (2)
  1. ATENOLOL [Suspect]
     Indication: HYPERTENSION
     Dates: start: 20100223
  2. ATENOLOL [Suspect]
     Indication: HYPERTENSION
     Dates: start: 20100310

REACTIONS (1)
  - DEATH [None]
